FAERS Safety Report 13517434 (Version 2)
Quarter: 2017Q2

REPORT INFORMATION
  Report Type: Spontaneous
  Country: US (occurrence: US)
  Receive Date: 20170505
  Receipt Date: 20170512
  Transmission Date: 20170830
  Serious: Yes (Hospitalization, Other)
  Sender: FDA-Public Use
  Company Number: US-PFIZER INC-2017196994

PATIENT
  Age: 39 Year
  Sex: Male

DRUGS (12)
  1. PROCARDIA XL [Concomitant]
     Active Substance: NIFEDIPINE
     Indication: BLOOD PRESSURE ABNORMAL
     Dosage: 30MG TABLET ONCE DAY
  2. ALPRAZOLAM. [Suspect]
     Active Substance: ALPRAZOLAM
     Indication: DEPRESSION
  3. PROZAC [Concomitant]
     Active Substance: FLUOXETINE HYDROCHLORIDE
     Indication: DEPRESSION
     Dosage: 20MG CAPSULE ONCE A DAY
     Dates: start: 1998
  4. XANAX [Suspect]
     Active Substance: ALPRAZOLAM
     Indication: ANXIETY
     Dosage: 1 MG, 3X/DAY
  5. XANAX [Suspect]
     Active Substance: ALPRAZOLAM
     Indication: DEPRESSION
  6. ALPRAZOLAM. [Suspect]
     Active Substance: ALPRAZOLAM
     Indication: ANXIETY
     Dosage: 1 MG, 3X/DAY
  7. HYZAAR [Concomitant]
     Active Substance: HYDROCHLOROTHIAZIDE\LOSARTAN POTASSIUM
     Indication: BLOOD PRESSURE ABNORMAL
     Dosage: [HYDROCHLOROTHIAZIDE 12.5MCG]/[LOSARTAN POTASSIUM 50MCG] ONCE A DAY
  8. PLETAL [Concomitant]
     Active Substance: CILOSTAZOL
     Dosage: 100MG TWO TIMES A DAY
  9. LIPITOR [Concomitant]
     Active Substance: ATORVASTATIN CALCIUM
     Indication: BLOOD CHOLESTEROL ABNORMAL
     Dosage: 40MG TABLET A DAY
     Dates: start: 2001
  10. XARELTO [Concomitant]
     Active Substance: RIVAROXABAN
     Indication: THROMBOSIS
     Dosage: 40MG TABLET A DAY
  11. PROAIR HFA [Concomitant]
     Active Substance: ALBUTEROL SULFATE
     Dosage: INHALER ALBUTEROL 90MCG FOR EXHALATION AS NEED
  12. ASPIRIN. [Concomitant]
     Active Substance: ASPIRIN
     Indication: ANTICOAGULANT THERAPY
     Dosage: 325 MG, 1X/DAY
     Dates: start: 2001

REACTIONS (11)
  - Myocardial infarction [Recovered/Resolved]
  - Withdrawal syndrome [Recovered/Resolved]
  - Physical assault [Unknown]
  - Anxiety [Recovered/Resolved]
  - Injury [Unknown]
  - Malaise [Unknown]
  - Thrombosis [Recovered/Resolved]
  - Violence-related symptom [Unknown]
  - Pulmonary mycosis [Unknown]
  - Condition aggravated [Recovering/Resolving]
  - Depression [Recovering/Resolving]

NARRATIVE: CASE EVENT DATE: 2000
